FAERS Safety Report 7150142-5 (Version None)
Quarter: 2010Q4

REPORT INFORMATION
  Report Type: 
  Country: None (occurrence: None)
  Receive Date: 20101207
  Receipt Date: 20101207
  Transmission Date: 20110411
  Serious: Yes (Other)
  Sender: FDA-Public Use
  Company Number: None

PATIENT
  Age: 55 Year
  Sex: Male
  Weight: 84.369 kg

DRUGS (1)
  1. NICOTROL [Suspect]
     Indication: SMOKING CESSATION THERAPY
     Dosage: 6 TIMES A DAY SAME DENTAL
     Route: 004

REACTIONS (3)
  - PAIN [None]
  - TOOTH DISCOLOURATION [None]
  - TOOTH LOSS [None]
